FAERS Safety Report 9765107 (Version 1)
Quarter: 2013Q4

REPORT INFORMATION
  Report Type: Spontaneous
  Country: US (occurrence: None)
  Receive Date: 20131213
  Receipt Date: 20131213
  Transmission Date: 20140711
  Serious: Yes (Other)
  Sender: FDA-Public Use
  Company Number: 2013SA031541

PATIENT
  Age: 50 Year
  Sex: Female

DRUGS (2)
  1. MENTHOL [Suspect]
     Indication: NECK PAIN
     Dates: start: 20100924
  2. IBUPROFEN [Concomitant]

REACTIONS (5)
  - Thermal burn [None]
  - Chemical injury [None]
  - Scab [None]
  - Skin exfoliation [None]
  - Pain [None]
